FAERS Safety Report 12214949 (Version 1)
Quarter: 2016Q1

REPORT INFORMATION
  Report Type: Spontaneous
  Country: US (occurrence: US)
  Receive Date: 20160328
  Receipt Date: 20160328
  Transmission Date: 20160526
  Serious: No
  Sender: FDA-Public Use
  Company Number: US-WARNER CHILCOTT, LLC-1049813

PATIENT
  Age: 86 Year
  Sex: Female
  Weight: 55.91 kg

DRUGS (2)
  1. ESTRACE [Suspect]
     Active Substance: ESTRADIOL
     Indication: VULVOVAGINAL MYCOTIC INFECTION
     Route: 067
     Dates: start: 20151210
  2. CHEMOTHERAPEUTICS INFUSION [Concomitant]

REACTIONS (3)
  - Off label use [None]
  - Memory impairment [Unknown]
  - Rash erythematous [Not Recovered/Not Resolved]
